FAERS Safety Report 9221211 (Version 2)
Quarter: 2013Q2

REPORT INFORMATION
  Report Type: Spontaneous
  Country: US (occurrence: US)
  Receive Date: 20130410
  Receipt Date: 20130506
  Transmission Date: 20140414
  Serious: Yes (Other)
  Sender: FDA-Public Use
  Company Number: US-AMGEN-USASP2013023889

PATIENT
  Age: 59 Year
  Sex: Male
  Weight: 122.45 kg

DRUGS (11)
  1. XGEVA [Suspect]
     Indication: PROSTATE CANCER METASTATIC
     Dosage: 120 MG, Q4WK
     Route: 058
     Dates: start: 20120209, end: 201303
  2. PROCRIT [Concomitant]
  3. NEULASTA [Concomitant]
  4. PROVENGE [Concomitant]
  5. QUADRAMET [Concomitant]
     Dosage: UNK
     Dates: start: 201206
  6. LUPRON [Concomitant]
  7. TAXOTERE [Concomitant]
     Dosage: UNK
     Dates: start: 20120920
  8. PREDNISONE [Concomitant]
     Dosage: 10 MG, UNK
  9. WARFARIN [Concomitant]
  10. CAUMADIN [Concomitant]
  11. AMOXICILLIN [Concomitant]

REACTIONS (3)
  - Osteonecrosis of jaw [Not Recovered/Not Resolved]
  - Myalgia [Unknown]
  - Oedema peripheral [Unknown]
